FAERS Safety Report 24555292 (Version 6)
Quarter: 2025Q4

REPORT INFORMATION
  Report Type: Other
  Country: US (occurrence: US)
  Receive Date: 20241028
  Receipt Date: 20251124
  Transmission Date: 20260118
  Serious: No
  Sender: TRAVERE THERAPEUTICS
  Company Number: US-TRAVERE-2024TVT00985

PATIENT
  Age: 71 Year
  Sex: Male

DRUGS (3)
  1. FILSPARI [Suspect]
     Active Substance: SPARSENTAN
     Indication: IgA nephropathy
     Route: 048
     Dates: start: 202409
  2. FILSPARI [Suspect]
     Active Substance: SPARSENTAN
     Dosage: EXPIRY DATE: 31-AUG-2027
     Route: 048
     Dates: start: 202409
  3. XYZAL [Concomitant]
     Active Substance: LEVOCETIRIZINE DIHYDROCHLORIDE

REACTIONS (6)
  - Dizziness [None]
  - Headache [Unknown]
  - Pruritus [None]
  - Abdominal discomfort [Unknown]
  - Hypersensitivity [Unknown]
  - Insomnia [Unknown]

NARRATIVE: CASE EVENT DATE: 20241210
